FAERS Safety Report 4366928-6 (Version None)
Quarter: 2004Q2

REPORT INFORMATION
  Report Type: 
  Country: None (occurrence: None)
  Receive Date: 20040527
  Receipt Date: 20040527
  Transmission Date: 20050107
  Serious: Yes (Other)
  Sender: FDA-Public Use
  Company Number: None

PATIENT
  Sex: Female
  Weight: 131.5431 kg

DRUGS (2)
  1. PAXIL [Suspect]
     Indication: DEATH OF RELATIVE
     Dosage: 20 MG DAY ORAL
     Route: 048
     Dates: start: 20030601, end: 20031220
  2. PAXIL [Suspect]
     Indication: PANIC ATTACK
     Dosage: 20 MG DAY ORAL
     Route: 048
     Dates: start: 20030601, end: 20031220

REACTIONS (4)
  - DISTURBANCE IN ATTENTION [None]
  - DRUG WITHDRAWAL SYNDROME [None]
  - EMOTIONAL DISORDER [None]
  - IMPAIRED WORK ABILITY [None]
